FAERS Safety Report 9567030 (Version 1)
Quarter: 2013Q3

REPORT INFORMATION
  Report Type: Spontaneous
  Country: US (occurrence: US)
  Receive Date: 20130930
  Receipt Date: 20130930
  Transmission Date: 20140515
  Serious: No
  Sender: FDA-Public Use
  Company Number: US-AMGEN-USASP2012061063

PATIENT
  Age: 43 Year
  Sex: Female

DRUGS (18)
  1. ENBREL [Suspect]
     Indication: PRODUCT USED FOR UNKNOWN INDICATION
     Dosage: 50 MG, QWK
     Route: 058
  2. HUMIRA [Concomitant]
     Dosage: 40 MG/0.8
  3. HYDROCODONE [Concomitant]
     Dosage: UNK
  4. LISINOPRIL [Concomitant]
     Dosage: 30 MG, UNK
  5. LIPITOR [Concomitant]
     Dosage: 10 MG, UNK
  6. FUROSEMIDE [Concomitant]
     Dosage: 20 MG, UNK
  7. SERTRALINE [Concomitant]
     Dosage: 25 MG, UNK
  8. IBUPROFEN [Concomitant]
     Dosage: 200 MG, UNK
  9. PROCHLORPERAZ [Concomitant]
     Dosage: 5 MG, UNK
  10. RANITIDINE [Concomitant]
     Dosage: 150 MG, UNK
  11. FOLIC ACID [Concomitant]
     Dosage: UNK
  12. METHOTREXATE [Concomitant]
     Dosage: 2.5 MG, UNK
  13. FLUTICASONE [Concomitant]
     Dosage: 50 UNK, UNK
  14. NASONEX [Concomitant]
     Dosage: 50 UNK, UNK
  15. PREDNISONE [Concomitant]
     Dosage: 1 MG, UNK
  16. MULTIVITAMIN                       /00097801/ [Concomitant]
  17. SUDAFED                            /00076302/ [Concomitant]
     Dosage: 30 MG, UNK
  18. LORTAB                             /00607101/ [Concomitant]
     Dosage: 5 UNK, UNK

REACTIONS (1)
  - Sinusitis [Unknown]
